FAERS Safety Report 11081009 (Version 1)
Quarter: 2015Q2

REPORT INFORMATION
  Report Type: Spontaneous
  Country: US (occurrence: None)
  Receive Date: 20150429
  Receipt Date: 20150429
  Transmission Date: 20150821
  Serious: Yes (Other)
  Sender: FDA-Public Use
  Company Number: 2015BEX00002

PATIENT
  Age: 69 Year
  Sex: Male
  Weight: 68 kg

DRUGS (28)
  1. LISINOPRIL. [Concomitant]
     Active Substance: LISINOPRIL
  2. PANTOPRAZOLE [Concomitant]
     Active Substance: PANTOPRAZOLE SODIUM
  3. PIPERACOLLIN/TAZOBACTAM [Concomitant]
  4. MORPHINE [Concomitant]
     Active Substance: MORPHINE
  5. CEFTAROLINE [Concomitant]
     Active Substance: CEFTAROLINE
  6. CARVEDILOL (CARVEDILOL) TABLET, 3.125MG [Suspect]
     Active Substance: CARVEDILOL
     Indication: ATRIAL FIBRILLATION
  7. LOPERAMIDE [Concomitant]
     Active Substance: LOPERAMIDE
  8. ENOXAPARIN [Concomitant]
     Active Substance: ENOXAPARIN
  9. NEFEDIPINE [Concomitant]
  10. HYDRALAZINE [Concomitant]
     Active Substance: HYDRALAZINE HYDROCHLORIDE
  11. CALCIUM GLUCONATE. [Concomitant]
     Active Substance: CALCIUM GLUCONATE
  12. ACETAMINOPHEN. [Concomitant]
     Active Substance: ACETAMINOPHEN
  13. NITROGLYCERIN. [Concomitant]
     Active Substance: NITROGLYCERIN
  14. FUROSEMIDE. [Concomitant]
     Active Substance: FUROSEMIDE
  15. FERROUS SULFATE [Concomitant]
     Active Substance: FERROUS SULFATE\FERROUS SULFATE, DRIED
  16. ALBUTEROL/PRATROPIUM [Concomitant]
  17. VANCOMYCIN [Concomitant]
     Active Substance: VANCOMYCIN
  18. GLYBURIDE. [Concomitant]
     Active Substance: GLYBURIDE
  19. TESTOSTERONE. [Concomitant]
     Active Substance: TESTOSTERONE
  20. METROODAZOLE [Concomitant]
  21. LEVOFLOXACIN. [Concomitant]
     Active Substance: LEVOFLOXACIN
  22. INSULIN GLARGINE [Concomitant]
     Active Substance: INSULIN GLARGINE
  23. DAPTOMYCIN. [Concomitant]
     Active Substance: DAPTOMYCIN
  24. MULTIVITAMIN [Concomitant]
     Active Substance: VITAMINS
  25. FAMOTIDINE. [Concomitant]
     Active Substance: FAMOTIDINE
  26. CYNACOBALAMIN [Concomitant]
  27. CHOLECALCIFEROL [Concomitant]
     Active Substance: CHOLECALCIFEROL
  28. ALBUMIN [Concomitant]
     Active Substance: ALBUMIN (HUMAN)

REACTIONS (2)
  - Hyperkalaemia [None]
  - Blood glucose increased [None]
